FAERS Safety Report 7150359-X (Version None)
Quarter: 2010Q4

REPORT INFORMATION
  Report Type: 
  Country: None (occurrence: None)
  Receive Date: 20101123
  Receipt Date: 20101109
  Transmission Date: 20110411
  Serious: Yes (Hospitalization)
  Sender: FDA-Public Use
  Company Number: 2010002766

PATIENT
  Sex: Male
  Weight: 98 kg

DRUGS (7)
  1. ERLOTINIB (ERLOTINIB) (TABLET) (ERLOTINIB) [Suspect]
     Indication: PANCREATIC CARCINOMA
     Dosage: 100 MG QD, ORAL
     Route: 048
     Dates: start: 20100511
  2. GDC-0449 [Suspect]
     Indication: PANCREATIC CARCINOMA
     Dosage: 150 MG QD, ORAL
     Route: 048
     Dates: start: 20100511
  3. GEMCITABINE [Suspect]
     Indication: PANCREATIC CARCINOMA
     Dosage: 1000 MG/M2, DAYS 1, 8 AND 15) INTRAVENOUS
     Route: 042
     Dates: start: 20100511
  4. DILTIAZEM [Concomitant]
  5. LOVASTATIN [Concomitant]
  6. NEXIUM [Concomitant]
  7. PROPAFENONE HCL [Concomitant]

REACTIONS (9)
  - CHEST DISCOMFORT [None]
  - CHEST PAIN [None]
  - DECREASED APPETITE [None]
  - DEHYDRATION [None]
  - DIARRHOEA [None]
  - FATIGUE [None]
  - HYPOKALAEMIA [None]
  - HYPONATRAEMIA [None]
  - PNEUMONIA [None]
